FAERS Safety Report 16276851 (Version 8)
Quarter: 2020Q1

REPORT INFORMATION
  Report Type: Spontaneous
  Country: US (occurrence: US)
  Receive Date: 20190506
  Receipt Date: 20200131
  Transmission Date: 20200409
  Serious: No
  Sender: FDA-Public Use
  Company Number: US-PFIZER INC-2019183873

PATIENT
  Age: 91 Year
  Sex: Female

DRUGS (2)
  1. LYRICA [Suspect]
     Active Substance: PREGABALIN
     Indication: POST HERPETIC NEURALGIA
     Dosage: 50 MG, AS NEEDED (1-2 CAPSULES NIGHTLY, TRY ONE AT NIGHT FIRST)
     Route: 048
  2. LYRICA [Suspect]
     Active Substance: PREGABALIN
     Indication: PAIN
     Dosage: 50 MG, 2X/DAY

REACTIONS (3)
  - Restless legs syndrome [Unknown]
  - Nerve injury [Unknown]
  - Back pain [Unknown]
